FAERS Safety Report 4595855-4 (Version None)
Quarter: 2005Q1

REPORT INFORMATION
  Report Type: 
  Country: None (occurrence: None)
  Receive Date: 20050224
  Receipt Date: 20050203
  Transmission Date: 20050727
  Serious: Yes (Other)
  Sender: FDA-Public Use
  Company Number: GBS050116373

PATIENT
  Age: 66 Year
  Sex: Female
  Weight: 79 kg

DRUGS (7)
  1. FORTEO [Suspect]
     Indication: OSTEOPOROSIS
     Dates: start: 20041104, end: 20050105
  2. HYDROCORTISONE [Concomitant]
  3. ISOPTIN [Concomitant]
  4. LOPID [Concomitant]
  5. LOSEC                    (OMEPRAZOLE SODIUM) [Concomitant]
  6. PREMARIN [Concomitant]
  7. FRUMIL [Concomitant]

REACTIONS (4)
  - COORDINATION ABNORMAL [None]
  - DIZZINESS [None]
  - FATIGUE [None]
  - PAIN IN EXTREMITY [None]
